FAERS Safety Report 17806407 (Version 1)
Quarter: 2020Q2

REPORT INFORMATION
  Report Type: Report from Study
  Country: EG (occurrence: EG)
  Receive Date: 20200520
  Receipt Date: 20200520
  Transmission Date: 20200714
  Serious: Yes (Death, Hospitalization)
  Sender: FDA-Public Use
  Company Number: NVSC2020EG137814

PATIENT
  Sex: Male

DRUGS (1)
  1. ENTRESTO [Suspect]
     Active Substance: SACUBITRIL\VALSARTAN
     Indication: CARDIAC FAILURE
     Dosage: 0.5 DF, BID (HALF TABLET TWICE DAILY)
     Route: 048
     Dates: start: 202001

REACTIONS (2)
  - Wrong technique in product usage process [Fatal]
  - Dyspnoea [Fatal]

NARRATIVE: CASE EVENT DATE: 202001
